FAERS Safety Report 5563915-7 (Version None)
Quarter: 2007Q4

REPORT INFORMATION
  Report Type: 
  Country: None (occurrence: None)
  Receive Date: 20071217
  Receipt Date: 20071002
  Transmission Date: 20080405
  Serious: No
  Sender: FDA-Public Use
  Company Number: US-ASTRAZENECA-2007UW22997

PATIENT
  Age: 65 Year
  Sex: Female
  Weight: 48.5 kg

DRUGS (3)
  1. CRESTOR [Suspect]
     Indication: BLOOD CHOLESTEROL
     Route: 048
     Dates: start: 20070601
  2. ZETIA [Concomitant]
  3. WELCHOL [Concomitant]

REACTIONS (2)
  - OPEN WOUND [None]
  - RASH [None]
